FAERS Safety Report 16352403 (Version 1)
Quarter: 2019Q2

REPORT INFORMATION
  Report Type: Spontaneous
  Country: US (occurrence: US)
  Receive Date: 20190524
  Receipt Date: 20190524
  Transmission Date: 20190711
  Serious: Yes (Life-Threatening, Hospitalization, Other)
  Sender: FDA-Public Use
  Company Number: US-AUROBINDO-AUR-APL-2019-028018

PATIENT

DRUGS (6)
  1. HEPARIN [Suspect]
     Active Substance: HEPARIN SODIUM
     Dosage: UNK
     Route: 065
  2. HEPARIN [Suspect]
     Active Substance: HEPARIN SODIUM
     Dosage: 5000 INTERNATIONAL UNIT
     Route: 042
  3. ACETYLSALICYLIC ACID [Suspect]
     Active Substance: ASPIRIN
     Dosage: 325 MILLIGRAM
     Route: 048
  4. PRASUGREL. [Suspect]
     Active Substance: PRASUGREL
     Indication: ANTIPLATELET THERAPY
     Dosage: 60 MILLIGRAM
     Route: 065
  5. HEPARIN [Suspect]
     Active Substance: HEPARIN SODIUM
     Indication: PRODUCT USED FOR UNKNOWN INDICATION
     Dosage: 7000 INTERNATIONAL UNIT
     Route: 042
  6. ACETYLSALICYLIC ACID [Suspect]
     Active Substance: ASPIRIN
     Indication: ANTIPLATELET THERAPY
     Dosage: UNK, DAILY
     Route: 065

REACTIONS (1)
  - Vascular pseudoaneurysm [Recovered/Resolved]
